FAERS Safety Report 7142122-0 (Version None)
Quarter: 2010Q4

REPORT INFORMATION
  Report Type: 
  Country: None (occurrence: None)
  Receive Date: 20101207
  Receipt Date: 20101129
  Transmission Date: 20110411
  Serious: Yes (Hospitalization, Other)
  Sender: FDA-Public Use
  Company Number: GB-BRISTOL-MYERS SQUIBB COMPANY-15408818

PATIENT
  Age: 30 Month
  Sex: Female
  Weight: 11 kg

DRUGS (8)
  1. PARACETAMOL [Suspect]
     Indication: PYREXIA
     Dosage: 90 MG/KG/DAY
     Route: 048
  2. PARACETAMOL [Suspect]
     Indication: MALAISE
     Dosage: 90 MG/KG/DAY
     Route: 048
  3. PARACETAMOL [Suspect]
     Indication: NAUSEA
     Dosage: 90 MG/KG/DAY
     Route: 048
  4. PARACETAMOL [Suspect]
     Indication: VOMITING
     Dosage: 90 MG/KG/DAY
     Route: 048
  5. AMOXICILLIN [Suspect]
     Indication: PYREXIA
  6. AMOXICILLIN [Suspect]
     Indication: MALAISE
  7. AMOXICILLIN [Suspect]
     Indication: VOMITING
  8. AMOXICILLIN [Suspect]
     Indication: NAUSEA

REACTIONS (11)
  - ACUTE HEPATIC FAILURE [None]
  - AMMONIA INCREASED [None]
  - BLOOD UREA INCREASED [None]
  - COAGULOPATHY [None]
  - ENCEPHALOPATHY [None]
  - HEPATOMEGALY [None]
  - HYPOGLYCAEMIA [None]
  - LACTIC ACIDOSIS [None]
  - METABOLIC ACIDOSIS [None]
  - TRANSAMINASES INCREASED [None]
  - VOMITING [None]
